FAERS Safety Report 6971706-5 (Version None)
Quarter: 2010Q3

REPORT INFORMATION
  Report Type: 
  Country: None (occurrence: None)
  Receive Date: 20100908
  Receipt Date: 20100226
  Transmission Date: 20110219
  Serious: Yes (Other)
  Sender: FDA-Public Use
  Company Number: US-PFIZER INC-2010026739

PATIENT
  Sex: Male
  Weight: 95.254 kg

DRUGS (1)
  1. NARDIL [Suspect]
     Indication: DEPRESSION
     Dosage: 30 MG, 3X/DAY
     Dates: start: 19830101

REACTIONS (2)
  - PSYCHOTIC DISORDER [None]
  - WITHDRAWAL SYNDROME [None]
